FAERS Safety Report 8126931-7 (Version None)
Quarter: 2012Q1

REPORT INFORMATION
  Report Type: 
  Country: None (occurrence: None)
  Receive Date: 20120210
  Receipt Date: 20120208
  Transmission Date: 20120608
  Serious: No
  Sender: FDA-Public Use
  Company Number: US-PFIZER INC-2012034935

PATIENT
  Sex: Female
  Weight: 63.492 kg

DRUGS (3)
  1. HYDROCODONE [Concomitant]
     Indication: ARTHRALGIA
     Dosage: UNK, EVERY 6 HOURS
  2. CHANTIX [Suspect]
     Indication: SMOKING CESSATION THERAPY
     Dosage: 0.5 MG, DAILY
     Route: 048
     Dates: start: 20120101
  3. CHANTIX [Suspect]
     Dosage: UNK
     Route: 048
     Dates: end: 20120201

REACTIONS (2)
  - THINKING ABNORMAL [None]
  - FRUSTRATION [None]
